FAERS Safety Report 12356546 (Version 1)
Quarter: 2016Q2

REPORT INFORMATION
  Report Type: Report from Study
  Country: PA (occurrence: PA)
  Receive Date: 20160511
  Receipt Date: 20160511
  Transmission Date: 20160815
  Serious: Yes (Hospitalization)
  Sender: FDA-Public Use
  Company Number: PHHY2016PA045474

PATIENT
  Age: 75 Year
  Sex: Female

DRUGS (1)
  1. TASIGNA [Suspect]
     Active Substance: NILOTINIB
     Indication: PRODUCT USED FOR UNKNOWN INDICATION
     Route: 065

REACTIONS (7)
  - Decreased appetite [Unknown]
  - Limb discomfort [Unknown]
  - Muscular weakness [Unknown]
  - Abdominal distension [Unknown]
  - Diabetes mellitus [Unknown]
  - Syncope [Unknown]
  - Insomnia [Unknown]
